FAERS Safety Report 9868660 (Version 1)
Quarter: 2014Q1

REPORT INFORMATION
  Report Type: Spontaneous
  Country: ES (occurrence: ES)
  Receive Date: 20140204
  Receipt Date: 20140204
  Transmission Date: 20141002
  Serious: Yes (Other)
  Sender: FDA-Public Use
  Company Number: ES-ASTRAZENECA-2014SE06185

PATIENT
  Age: 57 Year
  Sex: Male

DRUGS (2)
  1. CRESTOR [Suspect]
     Route: 048
     Dates: start: 20131101, end: 20140117
  2. PRADAXA 150 MG HARD CAPSULES, 60 CAPS (DABIGATRAN ETEXILATE MESYLATE) [Concomitant]
     Indication: ANTICOAGULANT THERAPY
     Route: 048
     Dates: start: 20131013

REACTIONS (2)
  - Hypertransaminasaemia [Not Recovered/Not Resolved]
  - Medication error [Unknown]
